FAERS Safety Report 7484355-X (Version None)
Quarter: 2011Q2

REPORT INFORMATION
  Report Type: 
  Country: None (occurrence: None)
  Receive Date: 20110513
  Receipt Date: 20110513
  Transmission Date: 20111010
  Serious: Yes (Other)
  Sender: FDA-Public Use
  Company Number: None

PATIENT
  Sex: Female
  Weight: 68.0396 kg

DRUGS (2)
  1. BUPROPION HCL [Suspect]
     Indication: DEPRESSION
     Dosage: 150 MG BID PO
     Route: 048
     Dates: start: 20101226, end: 20110215
  2. BUPROPION HCL [Suspect]
     Indication: FATIGUE
     Dosage: 150 MG BID PO
     Route: 048
     Dates: start: 20101226, end: 20110215

REACTIONS (4)
  - NAUSEA [None]
  - MEMORY IMPAIRMENT [None]
  - PRODUCT SUBSTITUTION ISSUE [None]
  - HEADACHE [None]
